FAERS Safety Report 6233970-X (Version None)
Quarter: 2009Q2

REPORT INFORMATION
  Report Type: 
  Country: None (occurrence: None)
  Receive Date: 20090618
  Receipt Date: 20090612
  Transmission Date: 20091009
  Serious: Yes (Other)
  Sender: FDA-Public Use
  Company Number: JP-BAYER-200911975BYL

PATIENT
  Age: 80 Year
  Sex: Female

DRUGS (2)
  1. ADALAT CC [Suspect]
     Indication: HYPERTENSION
     Dosage: TOTAL DAILY DOSE: 40 MG  UNIT DOSE: 40 MG
     Route: 048
     Dates: start: 20090524, end: 20090605
  2. PLAVIX [Concomitant]
     Route: 048
     Dates: start: 20090415

REACTIONS (2)
  - HAEMATEMESIS [None]
  - LIVER DISORDER [None]
